FAERS Safety Report 18060394 (Version 1)
Quarter: 2020Q3

REPORT INFORMATION
  Report Type: Spontaneous
  Country: US (occurrence: US)
  Receive Date: 20200723
  Receipt Date: 20200723
  Transmission Date: 20201103
  Serious: No
  Sender: FDA-Public Use
  Company Number: None

PATIENT
  Age: 74 Year
  Sex: Female
  Weight: 51.75 kg

DRUGS (5)
  1. FOLIC ACID. [Concomitant]
     Active Substance: FOLIC ACID
  2. SYNTHROID [Concomitant]
     Active Substance: LEVOTHYROXINE SODIUM
  3. JAKAFI [Suspect]
     Active Substance: RUXOLITINIB
     Route: 048
  4. CALTRATE 600 +D [Concomitant]
  5. JADENU [Concomitant]
     Active Substance: DEFERASIROX

REACTIONS (2)
  - Product availability issue [None]
  - Hospitalisation [None]

NARRATIVE: CASE EVENT DATE: 20200723
